FAERS Safety Report 7518844-6 (Version None)
Quarter: 2011Q2

REPORT INFORMATION
  Report Type: 
  Country: None (occurrence: None)
  Receive Date: 20110602
  Receipt Date: 20110531
  Transmission Date: 20111010
  Serious: No
  Sender: FDA-Public Use
  Company Number: US-PFIZER INC-2011117450

PATIENT
  Sex: Female

DRUGS (1)
  1. LYRICA [Suspect]
     Dosage: UNK

REACTIONS (5)
  - NECK PAIN [None]
  - DIZZINESS [None]
  - BACK PAIN [None]
  - NERVOUSNESS [None]
  - INFLUENZA LIKE ILLNESS [None]
